FAERS Safety Report 23540146 (Version 1)
Quarter: 2024Q1

REPORT INFORMATION
  Report Type: Spontaneous
  Country: US (occurrence: US)
  Receive Date: 20240219
  Receipt Date: 20240219
  Transmission Date: 20240410
  Serious: No
  Sender: FDA-Public Use
  Company Number: US-002147023-NVSC2024US033899

PATIENT
  Age: 70 Year
  Sex: Male

DRUGS (1)
  1. LEQVIO [Suspect]
     Active Substance: INCLISIRAN SODIUM
     Indication: Hyperlipidaemia
     Dosage: UNK,PREFILLED SYRINGE 284 MG/ 1.5 ML (INITIAL DOSE GIVE, NEXT DOSE DUE AT 3 MONTHS, THEN EVERY 6 MON
     Route: 058
     Dates: start: 20240201, end: 20240215

REACTIONS (1)
  - Injection site pain [Recovered/Resolved]
